FAERS Safety Report 6134237-0 (Version None)
Quarter: 2009Q1

REPORT INFORMATION
  Report Type: 
  Country: None (occurrence: None)
  Receive Date: 20090326
  Receipt Date: 20090312
  Transmission Date: 20090719
  Serious: Yes (Other)
  Sender: FDA-Public Use
  Company Number: KR-GENENTECH-279859

PATIENT

DRUGS (1)
  1. ACTIVASE [Suspect]
     Indication: PULMONARY EMBOLISM
     Dosage: UNK
     Route: 042

REACTIONS (2)
  - COMPARTMENT SYNDROME [None]
  - PUNCTURE SITE HAEMORRHAGE [None]
